FAERS Safety Report 20781361 (Version 1)
Quarter: 2022Q2

REPORT INFORMATION
  Report Type: Spontaneous
  Country: US (occurrence: US)
  Receive Date: 20220504
  Receipt Date: 20220504
  Transmission Date: 20220721
  Serious: No
  Sender: FDA-Public Use
  Company Number: US-AMGEN-USASP2022074934

PATIENT
  Age: 40 Year
  Sex: Male

DRUGS (2)
  1. ENBREL [Suspect]
     Active Substance: ETANERCEPT
     Indication: Pain in extremity
     Dosage: 50 MILLIGRAM, QWK
     Route: 058
     Dates: start: 20190923
  2. ENBREL [Suspect]
     Active Substance: ETANERCEPT
     Indication: Off label use

REACTIONS (1)
  - Off label use [Unknown]

NARRATIVE: CASE EVENT DATE: 20190923
